FAERS Safety Report 6121105-3 (Version None)
Quarter: 2009Q1

REPORT INFORMATION
  Report Type: 
  Country: None (occurrence: None)
  Receive Date: 20090317
  Receipt Date: 20090309
  Transmission Date: 20090719
  Serious: Yes (Hospitalization, Other)
  Sender: FDA-Public Use
  Company Number: A0718710A

PATIENT
  Age: 45 Year
  Sex: Male
  Weight: 114.5 kg

DRUGS (6)
  1. AVANDIA [Suspect]
     Dosage: 2MG PER DAY
     Dates: start: 20020101, end: 20050701
  2. AVANDAMET [Suspect]
     Dates: start: 20020101, end: 20070901
  3. AVANDARYL [Suspect]
     Indication: DRUG USE FOR UNKNOWN INDICATION
     Dates: start: 20040204, end: 20061101
  4. ACTOS [Concomitant]
     Dates: start: 20060101
  5. METFORMIN HCL [Concomitant]
     Dates: start: 20050101, end: 20050701
  6. JANUVIA [Concomitant]
     Dates: start: 20060101

REACTIONS (2)
  - HYPERTENSION [None]
  - MYOCARDIAL INFARCTION [None]
